FAERS Safety Report 5282868-2 (Version None)
Quarter: 2007Q1

REPORT INFORMATION
  Report Type: 
  Country: None (occurrence: None)
  Receive Date: 20070329
  Receipt Date: 20070329
  Transmission Date: 20070707
  Serious: Yes (Hospitalization)
  Sender: FDA-Public Use
  Company Number: None

PATIENT
  Age: 57 Year
  Sex: Male

DRUGS (17)
  1. HEPARIN [Suspect]
     Indication: THROMBOSIS PROPHYLAXIS
     Dosage: 25,000 UNITS PER PROTOCOL IV DRIP
     Route: 041
     Dates: start: 20070119, end: 20070131
  2. ACETYLCYSTEINE [Concomitant]
  3. HYDROX/HYROX/SIMETHICONE [Concomitant]
  4. ALBUMIN (HUMAN) [Concomitant]
  5. ALBUTEROL [Concomitant]
  6. ASPIRIN [Concomitant]
  7. BISACODYL SUPP [Concomitant]
  8. CALCIUM CHLORIDE [Concomitant]
  9. DARBEPOETIN ALFA [Concomitant]
  10. GENTAMICIN [Concomitant]
  11. SODIUM CHLORIDE [Concomitant]
  12. HEPARIN/SODIUM CHLORIDE [Concomitant]
  13. HEPARIN [Concomitant]
  14. HETASTARCH/E-LYTES/LACTATE [Concomitant]
  15. REGULAR INSULIN [Concomitant]
  16. IPRATROPIUM BR [Concomitant]
  17. MAGNESIUM SULFATE [Concomitant]

REACTIONS (3)
  - ANTIBODY TEST POSITIVE [None]
  - HEPARIN-INDUCED THROMBOCYTOPENIA TEST [None]
  - PLATELET COUNT DECREASED [None]
